FAERS Safety Report 5688082-0 (Version None)
Quarter: 2008Q1

REPORT INFORMATION
  Report Type: 
  Country: None (occurrence: None)
  Receive Date: 20080327
  Receipt Date: 20080317
  Transmission Date: 20080703
  Serious: Yes (Death, Hospitalization)
  Sender: FDA-Public Use
  Company Number: GXKR2008US02735

PATIENT
  Age: 66 Year
  Sex: Male

DRUGS (7)
  1. PROPOFOL [Suspect]
     Indication: SEDATION
  2. CYCLOSPORINE [Suspect]
     Indication: HEART TRANSPLANT
  3. METHYLPREDNISOLONE  (METHYLPREDNISOLONE) UNKNOWN [Suspect]
     Indication: MUSCULAR WEAKNESS
  4. SIMVASTATIN                     (SIMVASTATIN) UKNOWN [Suspect]
  5. COLCHICUM JTL LIQ [Suspect]
     Indication: GOUT
  6. PREDNISONE TAB [Concomitant]
  7. MYCOPHENOLATE MOFETIL [Concomitant]

REACTIONS (5)
  - GOUT [None]
  - MITOCHONDRIAL MYOPATHY ACQUIRED [None]
  - MYOPATHY TOXIC [None]
  - RESPIRATORY FAILURE [None]
  - RHABDOMYOLYSIS [None]
